FAERS Safety Report 23863637 (Version 1)
Quarter: 2024Q2

REPORT INFORMATION
  Report Type: Report from Study
  Country: IT (occurrence: IT)
  Receive Date: 20240516
  Receipt Date: 20240516
  Transmission Date: 20240716
  Serious: No
  Sender: FDA-Public Use
  Company Number: IT-SANDOZ-SDZ2024IT048125

PATIENT
  Age: 77 Year
  Sex: Female
  Weight: 78 kg

DRUGS (1)
  1. OMNITROPE [Suspect]
     Active Substance: SOMATROPIN
     Indication: Product used for unknown indication
     Dosage: 0.2 MG, QD
     Route: 058
     Dates: start: 20230125

REACTIONS (2)
  - Product dose omission issue [Unknown]
  - Device mechanical issue [Unknown]

NARRATIVE: CASE EVENT DATE: 20240508
